FAERS Safety Report 8798407 (Version 2)
Quarter: 2012Q4

REPORT INFORMATION
  Report Type: 
  Country: FR (occurrence: FR)
  Receive Date: 20120920
  Receipt Date: 20120924
  Transmission Date: 20130627
  Serious: Yes (Other)
  Sender: FDA-Public Use
  Company Number: FR-PFIZER INC-2012226680

PATIENT
  Age: 48 Year
  Sex: Female

DRUGS (2)
  1. VANCOMYCIN HCL [Suspect]
     Indication: OSTEOMYELITIS
     Dosage: UNK
     Route: 042
  2. CEFTRIAXONE [Suspect]
     Indication: OSTEOMYELITIS
     Dosage: UNK
     Route: 042

REACTIONS (2)
  - Deep vein thrombosis [Recovered/Resolved]
  - Air embolism [Recovered/Resolved]
